FAERS Safety Report 14307835 (Version 1)
Quarter: 2017Q4

REPORT INFORMATION
  Report Type: Spontaneous
  Country: US (occurrence: US)
  Receive Date: 20171220
  Receipt Date: 20171220
  Transmission Date: 20180321
  Serious: Yes (Other)
  Sender: FDA-Public Use
  Company Number: US-APOTEX-2017AP022620

PATIENT
  Age: 14 Year
  Sex: Female

DRUGS (2)
  1. GUANFACINE. [Suspect]
     Active Substance: GUANFACINE
     Indication: TIC
     Dosage: 1 MG, UNK
     Route: 065
  2. RISPERIDONE. [Suspect]
     Active Substance: RISPERIDONE
     Indication: TIC
     Dosage: 1.5 MG, PER DAY
     Route: 065

REACTIONS (3)
  - Body height below normal [Unknown]
  - Drug ineffective [Unknown]
  - Drug intolerance [Unknown]
